FAERS Safety Report 4477790-5 (Version None)
Quarter: 2004Q4

REPORT INFORMATION
  Report Type: 
  Country: None (occurrence: None)
  Receive Date: 20041014
  Receipt Date: 20040928
  Transmission Date: 20050328
  Serious: Yes (Hospitalization)
  Sender: FDA-Public Use
  Company Number: 8975

PATIENT
  Age: 61 Year
  Sex: Male

DRUGS (4)
  1. LEUCOVORIN CALCIUM [Suspect]
     Dosage: 325 MG IV
     Route: 042
     Dates: start: 20030924, end: 20030925
  2. OXALIPLATIN [Suspect]
     Dosage: 160 MG, IV
     Route: 042
     Dates: start: 20040924
  3. ONDANSETRON [Concomitant]
  4. FLUOROURACIL [Concomitant]

REACTIONS (2)
  - PRURITUS [None]
  - RASH ERYTHEMATOUS [None]
